FAERS Safety Report 13618086 (Version 2)
Quarter: 2017Q3

REPORT INFORMATION
  Report Type: Spontaneous
  Country: CA (occurrence: CA)
  Receive Date: 20170606
  Receipt Date: 20170810
  Transmission Date: 20171127
  Serious: Yes (Other)
  Sender: FDA-Public Use
  Company Number: CA-BIOMARINAP-CA-2017-114211

PATIENT
  Sex: Male
  Weight: 85.9 kg

DRUGS (4)
  1. MULTIVIT [Concomitant]
     Active Substance: VITAMINS
     Indication: PRODUCT USED FOR UNKNOWN INDICATION
  2. KUVAN [Suspect]
     Active Substance: SAPROPTERIN DIHYDROCHLORIDE
     Dosage: 1600 MG, QD
     Route: 048
     Dates: start: 201703
  3. KUVAN [Suspect]
     Active Substance: SAPROPTERIN DIHYDROCHLORIDE
     Indication: PHENYLKETONURIA
     Dosage: 1500 MG, QD
     Route: 048
     Dates: start: 20131206, end: 201703
  4. KUVAN [Suspect]
     Active Substance: SAPROPTERIN DIHYDROCHLORIDE
     Dosage: 1700 MG, QD
     Route: 048

REACTIONS (8)
  - Mood swings [Unknown]
  - Treatment noncompliance [Unknown]
  - Mental disorder [Unknown]
  - Attention deficit/hyperactivity disorder [Not Recovered/Not Resolved]
  - Depressed mood [Unknown]
  - Amino acid level increased [Unknown]
  - Anxiety [Unknown]
  - Suicidal ideation [Unknown]

NARRATIVE: CASE EVENT DATE: 2016
